FAERS Safety Report 14229974 (Version 3)
Quarter: 2018Q3

REPORT INFORMATION
  Report Type: Not Available
  Country: US (occurrence: US)
  Receive Date: 20171128
  Receipt Date: 20180720
  Transmission Date: 20181010
  Serious: No
  Sender: FDA-Public Use
  Company Number: US-NEUROCRINE BIOSCIENCES INC.-2017NBI01306

PATIENT
  Age: 52 Year
  Sex: Female

DRUGS (30)
  1. CYMBALTA [Concomitant]
     Active Substance: DULOXETINE HYDROCHLORIDE
     Route: 048
     Dates: start: 20170908, end: 20170914
  2. CYMBALTA [Concomitant]
     Active Substance: DULOXETINE HYDROCHLORIDE
     Route: 048
     Dates: start: 20170914, end: 20171021
  3. CYMBALTA [Concomitant]
     Active Substance: DULOXETINE HYDROCHLORIDE
     Dosage: TAKE 1 CAPSULE BY MOUTH TWICE A DAY
     Route: 048
     Dates: start: 20171021, end: 20180223
  4. ADDERALL [Concomitant]
     Active Substance: AMPHETAMINE ASPARTATE\AMPHETAMINE SULFATE\DEXTROAMPHETAMINE SACCHARATE\DEXTROAMPHETAMINE SULFATE
     Dosage: TAKE 1 TABLET MY MOUTH ONCE A DAY
     Route: 048
     Dates: start: 20180223, end: 20180223
  5. ADDERALL XR [Concomitant]
     Active Substance: AMPHETAMINE ASPARTATE\AMPHETAMINE SULFATE\DEXTROAMPHETAMINE SACCHARATE\DEXTROAMPHETAMINE SULFATE
     Dosage: TAKE 1 CAPSULE BY MOUTH TWICE A DAY CAPSULE AS DIRECTED TAKE 4 HOURS APART. TAKE FIRST DOSE 4 HOURS
     Route: 048
     Dates: start: 20180108, end: 20180223
  6. ADDERALL [Concomitant]
     Active Substance: AMPHETAMINE ASPARTATE\AMPHETAMINE SULFATE\DEXTROAMPHETAMINE SACCHARATE\DEXTROAMPHETAMINE SULFATE
     Dosage: TAKE 1 TABLET MY MOUTH ONCE A DAY
     Route: 048
     Dates: start: 20170921, end: 20171021
  7. ADDERALL [Concomitant]
     Active Substance: AMPHETAMINE ASPARTATE\AMPHETAMINE SULFATE\DEXTROAMPHETAMINE SACCHARATE\DEXTROAMPHETAMINE SULFATE
     Dosage: TAKE 1 TABLET MY MOUTH ONCE A DAY
     Route: 048
     Dates: start: 20171021, end: 20171023
  8. ADDERALL [Concomitant]
     Active Substance: AMPHETAMINE ASPARTATE\AMPHETAMINE SULFATE\DEXTROAMPHETAMINE SACCHARATE\DEXTROAMPHETAMINE SULFATE
     Dosage: TAKE 1 TABLET MY MOUTH ONCE A DAY
     Route: 048
     Dates: start: 20171023, end: 20171031
  9. FOCALIN XR [Concomitant]
     Active Substance: DEXMETHYLPHENIDATE HYDROCHLORIDE
     Route: 048
     Dates: start: 20170822, end: 20170908
  10. BUPROPION. [Concomitant]
     Active Substance: BUPROPION
     Route: 048
     Dates: start: 20170929, end: 20171021
  11. ADDERALL XR [Concomitant]
     Active Substance: AMPHETAMINE ASPARTATE\AMPHETAMINE SULFATE\DEXTROAMPHETAMINE SACCHARATE\DEXTROAMPHETAMINE SULFATE
     Dosage: TAKE 1 CAPSULE BY MOUTH TWICE A DAY CAPSULE AS DIRECTED TAKE 4 HOURS APART. TAKE FIRST DOSE 4 HOURS
     Route: 048
     Dates: start: 20171031, end: 20171211
  12. ADDERALL XR [Concomitant]
     Active Substance: AMPHETAMINE ASPARTATE\AMPHETAMINE SULFATE\DEXTROAMPHETAMINE SACCHARATE\DEXTROAMPHETAMINE SULFATE
     Dosage: TAKE 1 CAPSULE BY MOUTH TWICE A DAY CAPSULE AS DIRECTED TAKE 4 HOURS APART. TAKE FIRST DOSE 4 HOURS
     Route: 048
     Dates: start: 20171211, end: 20180108
  13. CYMBALTA [Concomitant]
     Active Substance: DULOXETINE HYDROCHLORIDE
     Route: 048
     Dates: start: 20170803, end: 20170822
  14. GUANFACINE. [Concomitant]
     Active Substance: GUANFACINE
     Dosage: TAKE 1 TABLET BY MOUTH AT BEDTIME AS DIRECTED TAKE HALF TABLET FOR 1 WEEK THEN FULL TABLET THEREAFTE
     Route: 048
     Dates: start: 20170908, end: 20170915
  15. GUANFACINE. [Concomitant]
     Active Substance: GUANFACINE
     Dosage: AT BEDTIME
     Route: 048
     Dates: start: 20170908, end: 20170921
  16. CYMBALTA [Concomitant]
     Active Substance: DULOXETINE HYDROCHLORIDE
     Route: 048
     Dates: start: 20160519, end: 20170803
  17. CYMBALTA [Concomitant]
     Active Substance: DULOXETINE HYDROCHLORIDE
     Route: 048
     Dates: start: 20170803, end: 20170822
  18. ADDERALL [Concomitant]
     Active Substance: AMPHETAMINE ASPARTATE\AMPHETAMINE SULFATE\DEXTROAMPHETAMINE SACCHARATE\DEXTROAMPHETAMINE SULFATE
     Dosage: TAKE 1 TABLET MY MOUTH ONCE A DAY
     Route: 048
     Dates: start: 20171211, end: 20180108
  19. DESVENLAFAXINE SUCCINATE. [Concomitant]
     Active Substance: DESVENLAFAXINE SUCCINATE
     Route: 048
     Dates: start: 20170803, end: 20170908
  20. ADDERALL XR [Concomitant]
     Active Substance: AMPHETAMINE ASPARTATE\AMPHETAMINE SULFATE\DEXTROAMPHETAMINE SACCHARATE\DEXTROAMPHETAMINE SULFATE
     Dosage: TAKE 1 CAPSULE BY MOUTH TWICE A DAY AS DIRECTED. TAKE 4 HOURS APART. TAKE FIRST DOSE 4 HOURS AFTER T
     Route: 048
     Dates: start: 20180223, end: 20180223
  21. ADDERALL [Concomitant]
     Active Substance: AMPHETAMINE ASPARTATE\AMPHETAMINE SULFATE\DEXTROAMPHETAMINE SACCHARATE\DEXTROAMPHETAMINE SULFATE
     Dosage: TAKE 1 TABLET MY MOUTH ONCE A DAY
     Route: 048
     Dates: start: 20171031, end: 20171211
  22. ADDERALL XR [Concomitant]
     Active Substance: AMPHETAMINE ASPARTATE\AMPHETAMINE SULFATE\DEXTROAMPHETAMINE SACCHARATE\DEXTROAMPHETAMINE SULFATE
     Dosage: TAKE 1 CAPSULE BY MOUTH THREE TIMES A DAY
     Route: 048
     Dates: start: 20170803
  23. ADDERALL [Concomitant]
     Active Substance: AMPHETAMINE ASPARTATE\AMPHETAMINE SULFATE\DEXTROAMPHETAMINE SACCHARATE\DEXTROAMPHETAMINE SULFATE
     Dosage: TAKE 1 TABLET MY MOUTH ONCE A DAY
     Route: 048
     Dates: start: 20170908, end: 20170921
  24. ADDERALL [Concomitant]
     Active Substance: AMPHETAMINE ASPARTATE\AMPHETAMINE SULFATE\DEXTROAMPHETAMINE SACCHARATE\DEXTROAMPHETAMINE SULFATE
     Dosage: TAKE 1 TABLET MY MOUTH ONCE A DAY
     Route: 048
     Dates: start: 20180108, end: 20180223
  25. ADDERALL XR [Concomitant]
     Active Substance: AMPHETAMINE ASPARTATE\AMPHETAMINE SULFATE\DEXTROAMPHETAMINE SACCHARATE\DEXTROAMPHETAMINE SULFATE
     Dosage: TAKE 1 CAPSULE BY MOUTH TWICE A DAY CAPSULE AS DIRECTED TAKE 4 HOURS APART. TAKE FIRST DOSE 4 HOURS
     Route: 048
     Dates: start: 20171023, end: 20171031
  26. ADDERALL XR [Concomitant]
     Active Substance: AMPHETAMINE ASPARTATE\AMPHETAMINE SULFATE\DEXTROAMPHETAMINE SACCHARATE\DEXTROAMPHETAMINE SULFATE
     Dosage: TAKE 1 CAPSULE BY MOUTH ONCE A DAY AS DIRECTED AFTER AFTER FINISHING CYMBALTA 30 MG ORAL FOR TWO WEE
     Route: 048
     Dates: start: 20170803, end: 20170822
  27. ADDERALL XR [Concomitant]
     Active Substance: AMPHETAMINE ASPARTATE\AMPHETAMINE SULFATE\DEXTROAMPHETAMINE SACCHARATE\DEXTROAMPHETAMINE SULFATE
     Dosage: TAKE 1 CAPSULE BY MOUTH TWICE A DAY CAPSULE AS DIRECTED TAKE 4 HOURS APART. TAKE FIRST DOSE 4 HOURS
     Route: 048
     Dates: start: 20171021, end: 20171023
  28. INGREZZA [Suspect]
     Active Substance: VALBENAZINE
     Indication: TARDIVE DYSKINESIA
     Route: 048
     Dates: start: 20170711, end: 20170824
  29. INGREZZA [Suspect]
     Active Substance: VALBENAZINE
     Route: 048
     Dates: start: 20170824, end: 20170914
  30. ADDERALL XR [Concomitant]
     Active Substance: AMPHETAMINE ASPARTATE\AMPHETAMINE SULFATE\DEXTROAMPHETAMINE SACCHARATE\DEXTROAMPHETAMINE SULFATE
     Dosage: TAKE 1 CAPSULE BY MOUTH TWICE A DAY CAPSULE AS DIRECTED TAKE 4 HOURS APART. TAKE FIRST DOSE 4 HOURS
     Route: 048
     Dates: start: 20170921, end: 20171021

REACTIONS (5)
  - Irritability [Recovered/Resolved]
  - Anger [Unknown]
  - Headache [Unknown]
  - Muscle spasms [Recovered/Resolved]
  - Insomnia [Recovered/Resolved]

NARRATIVE: CASE EVENT DATE: 2017
